FAERS Safety Report 5981648-X (Version None)
Quarter: 2008Q4

REPORT INFORMATION
  Report Type: 
  Country: None (occurrence: None)
  Receive Date: 20081205
  Receipt Date: 20081127
  Transmission Date: 20090506
  Serious: Yes (Hospitalization)
  Sender: FDA-Public Use
  Company Number: CA-ASTRAZENECA-2008UW25392

PATIENT
  Age: 78 Year
  Sex: Female
  Weight: 53.8 kg

DRUGS (1)
  1. CRESTOR [Suspect]
     Indication: BLOOD CHOLESTEROL
     Route: 048
     Dates: start: 20030101, end: 20070901

REACTIONS (3)
  - ENTEROCELE [None]
  - MYALGIA [None]
  - RECTOCELE REPAIR [None]
